FAERS Safety Report 8055862-6 (Version None)
Quarter: 2012Q1

REPORT INFORMATION
  Report Type: 
  Country: None (occurrence: None)
  Receive Date: 20120119
  Receipt Date: 20120119
  Transmission Date: 20120608
  Serious: No
  Sender: FDA-Public Use
  Company Number: None

PATIENT
  Sex: Male
  Weight: 70.306 kg

DRUGS (1)
  1. PROSCAR [Suspect]
     Indication: PROSTATOMEGALY
     Dosage: 5MG
     Dates: start: 19970507, end: 19990507

REACTIONS (4)
  - LOSS OF LIBIDO [None]
  - ERECTILE DYSFUNCTION [None]
  - DEPRESSION [None]
  - ANORGASMIA [None]
